FAERS Safety Report 13317638 (Version 1)
Quarter: 2017Q1

REPORT INFORMATION
  Report Type: Spontaneous
  Country: US (occurrence: US)
  Receive Date: 20170309
  Receipt Date: 20170309
  Transmission Date: 20170428
  Serious: No
  Sender: FDA-Public Use
  Company Number: None

PATIENT
  Age: 65 Year
  Sex: Female
  Weight: 71.1 kg

DRUGS (7)
  1. SYNTHROID [Concomitant]
     Active Substance: LEVOTHYROXINE SODIUM
  2. PROGESTERONE 100 MG [Suspect]
     Active Substance: PROGESTERONE
     Indication: HORMONE REPLACEMENT THERAPY
     Dosage: ?          QUANTITY:1 CAPSULE(S);?
     Route: 048
     Dates: start: 20170303, end: 20170303
  3. PROMETRIUM [Concomitant]
     Active Substance: PROGESTERONE
  4. CALCIUM [Concomitant]
     Active Substance: CALCIUM
  5. B VITAMINS [Concomitant]
     Active Substance: CYANOCOBALAMIN\DEXPANTHENOL\NIACINAMIDE\PYRIDOXINE HYDROCHLORIDE\RIBOFLAVIN 5^-PHOSPHATE SODIUM\THIAMINE HYDROCHLORIDE\VITAMIN B COMPLEX
  6. FLAXSEED [Concomitant]
     Active Substance: FLAX SEED
  7. ESTRADIOL. [Concomitant]
     Active Substance: ESTRADIOL

REACTIONS (8)
  - Pain [None]
  - Product quality issue [None]
  - Decreased appetite [None]
  - Feeling abnormal [None]
  - Listless [None]
  - Abdominal pain [None]
  - Sleep disorder [None]
  - Abdominal pain lower [None]

NARRATIVE: CASE EVENT DATE: 20170303
